FAERS Safety Report 4545766-5 (Version None)
Quarter: 2005Q1

REPORT INFORMATION
  Report Type: 
  Country: None (occurrence: None)
  Receive Date: 20050106
  Receipt Date: 20041227
  Transmission Date: 20050727
  Serious: Yes (Other)
  Sender: FDA-Public Use
  Company Number: US-JNJFOC-20040804112

PATIENT
  Sex: Male
  Weight: 94.35 kg

DRUGS (15)
  1. REMICADE [Suspect]
     Indication: RHEUMATOID ARTHRITIS
     Dosage: TOOK ^FOR A FEW MONTHS^
     Route: 042
  2. PREVACID [Concomitant]
  3. PREDNISONE [Concomitant]
  4. FOLIC ACID [Concomitant]
  5. VASERETIC [Concomitant]
  6. VASERETIC [Concomitant]
     Dosage: 10/25 DAILY.
  7. ASPIRIN [Concomitant]
  8. CELEBREX [Concomitant]
  9. KLONIPIN [Concomitant]
  10. OXYCONTIN [Concomitant]
  11. ZOCOR [Concomitant]
  12. AMBIEN [Concomitant]
  13. METHOTREXATE [Concomitant]
     Dosage: 0.4CC
  14. BEXTRA [Concomitant]
  15. TENORMIN [Concomitant]

REACTIONS (5)
  - ADVERSE EVENT [None]
  - DERMATOSIS [None]
  - MEASLES [None]
  - SKIN REACTION [None]
  - URTICARIA [None]
